FAERS Safety Report 7250181-X (Version None)
Quarter: 2011Q1

REPORT INFORMATION
  Report Type: 
  Country: None (occurrence: None)
  Receive Date: 20110128
  Receipt Date: 20101223
  Transmission Date: 20110831
  Serious: Yes (Hospitalization)
  Sender: FDA-Public Use
  Company Number: US-BAYER-201018276NA

PATIENT
  Sex: Female
  Weight: 50.794 kg

DRUGS (5)
  1. YASMIN [Suspect]
     Indication: ORAL CONTRACEPTION
     Route: 048
     Dates: start: 20010401, end: 20091001
  2. ANTIBIOTICS [Concomitant]
     Dosage: UNK UNK, PRN
     Dates: start: 20020101
  3. IBUPROFEN [Concomitant]
     Dosage: UNK UNK, PRN
  4. YAZ [Suspect]
     Indication: ORAL CONTRACEPTION
     Route: 048
     Dates: start: 20010401, end: 20091001
  5. ASCORBIC ACID [Concomitant]
     Dosage: UNK
     Dates: start: 20000101

REACTIONS (2)
  - GALLBLADDER DISORDER [None]
  - ABDOMINAL PAIN UPPER [None]
